FAERS Safety Report 7236042-0 (Version None)
Quarter: 2011Q1

REPORT INFORMATION
  Report Type: 
  Country: None (occurrence: None)
  Receive Date: 20110120
  Receipt Date: 20110114
  Transmission Date: 20110831
  Serious: Yes (Hospitalization, Other)
  Sender: FDA-Public Use
  Company Number: FR-PFIZER INC-2010177228

PATIENT
  Age: 80 Year
  Sex: Female

DRUGS (8)
  1. ZOLOFT [Suspect]
     Dosage: 50 MG, 2X/DAY
     Dates: start: 20090101
  2. CACIT D3 [Concomitant]
     Dosage: 1 DF, 2X/DAY
     Route: 048
  3. ZOLOFT [Suspect]
     Indication: DEPRESSION
     Dosage: 25 MG/DAY
  4. FOSAMAX [Concomitant]
     Dosage: UNK
     Route: 048
  5. ZOLOFT [Suspect]
     Dosage: 150 MG/DAY
     Dates: start: 20100801
  6. MEMANTINE HCL [Concomitant]
     Dosage: 20 MG, 1X/DAY
     Route: 048
     Dates: start: 20100101
  7. MODOPAR [Concomitant]
     Dosage: 100 MG/25 MG CAPSULE, FOUR DOSAGE FORMS A DAY
     Route: 048
  8. LEVOTHYROX [Concomitant]
     Dosage: 75 UG, 1X/DAY
     Route: 048

REACTIONS (3)
  - SUBDURAL HAEMATOMA [None]
  - INCORRECT DOSE ADMINISTERED [None]
  - FALL [None]
